FAERS Safety Report 16751087 (Version 1)
Quarter: 2019Q3

REPORT INFORMATION
  Report Type: Spontaneous
  Country: US (occurrence: US)
  Receive Date: 20190710
  Receipt Date: 20190710
  Transmission Date: 20191005
  Serious: No
  Sender: FDA-Public Use
  Company Number: None

PATIENT
  Age: 37 Year
  Sex: Female

DRUGS (4)
  1. CO Q-10 CAP [Concomitant]
  2. MENOPUR [Suspect]
     Active Substance: FOLLITROPIN\LUTEINIZING HORMONE
     Indication: INFERTILITY
     Dosage: ?          OTHER FREQUENCY:QD FOR 10 DAYS;?
     Route: 058
     Dates: start: 20190608
  3. FOLLISTIM AQ [Suspect]
     Active Substance: FOLLITROPIN
     Indication: INFERTILITY
     Dosage: ?          OTHER STRENGTH: 900IU/1.08 ML;OTHER FREQUENCY:QD FOR 10 DAYS;?
     Route: 058
     Dates: start: 20190608
  4. PNV-SELECT TAB [Concomitant]

REACTIONS (1)
  - Lip swelling [None]

NARRATIVE: CASE EVENT DATE: 20190624
